FAERS Safety Report 9497904 (Version 1)
Quarter: 2013Q3

REPORT INFORMATION
  Report Type: Spontaneous
  Country: US (occurrence: US)
  Receive Date: 20130904
  Receipt Date: 20130904
  Transmission Date: 20140515
  Serious: No
  Sender: FDA-Public Use
  Company Number: US-009507513-1309USA001339

PATIENT
  Sex: Male

DRUGS (1)
  1. PRINIVIL [Suspect]
     Dosage: 30 MG, UNK

REACTIONS (1)
  - Hyperkalaemia [Unknown]
